FAERS Safety Report 23095449 (Version 1)
Quarter: 2023Q4

REPORT INFORMATION
  Report Type: Spontaneous
  Country: US (occurrence: None)
  Receive Date: 20231020
  Receipt Date: 20231020
  Transmission Date: 20240110
  Serious: No
  Sender: FDA-Public Use
  Company Number: None

PATIENT
  Age: 69 Year
  Sex: Female

DRUGS (2)
  1. CLINDAMYCIN HYDROCHLORIDE [Suspect]
     Active Substance: CLINDAMYCIN HYDROCHLORIDE
     Indication: Blister
     Dosage: OTHER QUANTITY : 1 CAPSULE(S);?FREQUENCY : EVERY 12 HOURS;?
     Route: 048
     Dates: start: 20231019, end: 20231020
  2. CLINDAMYCIN HYDROCHLORIDE [Suspect]
     Active Substance: CLINDAMYCIN HYDROCHLORIDE
     Indication: Peripheral swelling

REACTIONS (2)
  - Pruritus [None]
  - Rash pruritic [None]

NARRATIVE: CASE EVENT DATE: 20231020
